FAERS Safety Report 6267282-5 (Version None)
Quarter: 2009Q3

REPORT INFORMATION
  Report Type: 
  Country: None (occurrence: None)
  Receive Date: 20090714
  Receipt Date: 20090703
  Transmission Date: 20100115
  Serious: Yes (Life-Threatening, Hospitalization)
  Sender: FDA-Public Use
  Company Number: FR-WYE-H10037809

PATIENT
  Age: 77 Year
  Sex: Female

DRUGS (2)
  1. CORDARONE [Suspect]
     Indication: DRUG USE FOR UNKNOWN INDICATION
     Dosage: UNKNOWN
     Route: 065
     Dates: start: 20090527, end: 20090621
  2. DIGOXIN [Concomitant]
     Indication: TACHYCARDIA
     Dosage: UNKNOWN
     Route: 065
     Dates: start: 20090619, end: 20090621

REACTIONS (2)
  - ELECTROCARDIOGRAM QT PROLONGED [None]
  - SYNCOPE [None]
